FAERS Safety Report 13462323 (Version 1)
Quarter: 2017Q2

REPORT INFORMATION
  Report Type: Spontaneous
  Country: US (occurrence: US)
  Receive Date: 20170420
  Receipt Date: 20170420
  Transmission Date: 20170830
  Serious: No
  Sender: FDA-Public Use
  Company Number: US-BAUSCH-BL-2016-030410

PATIENT
  Age: 68 Year
  Sex: Female

DRUGS (1)
  1. ARESTIN [Suspect]
     Active Substance: MINOCYCLINE HYDROCHLORIDE
     Indication: PERIODONTAL DISEASE
     Dosage: 1 APPLICATION IN AFFECTED POCKETS,?PERIODONTAL ROUTE
     Route: 065
     Dates: start: 20160621, end: 20160621

REACTIONS (3)
  - Urticaria [Recovered/Resolved]
  - Pain in jaw [Recovered/Resolved]
  - Gingival disorder [Recovered/Resolved]

NARRATIVE: CASE EVENT DATE: 201606
